FAERS Safety Report 6882271-5 (Version None)
Quarter: 2010Q3

REPORT INFORMATION
  Report Type: 
  Country: None (occurrence: None)
  Receive Date: 20100728
  Receipt Date: 20100728
  Transmission Date: 20110219
  Serious: Yes (Hospitalization)
  Sender: FDA-Public Use
  Company Number: None

PATIENT
  Sex: Female
  Weight: 47 kg

DRUGS (2)
  1. SORAFENIB [Suspect]
  2. VINORELBINE [Suspect]

REACTIONS (2)
  - ANAEMIA [None]
  - TRANSFUSION REACTION [None]
